FAERS Safety Report 19132794 (Version 1)
Quarter: 2021Q2

REPORT INFORMATION
  Report Type: Spontaneous
  Country: US (occurrence: US)
  Receive Date: 20210413
  Receipt Date: 20210413
  Transmission Date: 20210717
  Serious: Yes (Hospitalization)
  Sender: FDA-Public Use
  Company Number: None

PATIENT
  Age: 85 Year
  Sex: Female

DRUGS (8)
  1. PRAVASTATIN. [Concomitant]
     Active Substance: PRAVASTATIN
  2. ATENOLOL 25MG [Concomitant]
     Active Substance: ATENOLOL
  3. RAYALDEE [Suspect]
     Active Substance: CALCIFEDIOL
     Indication: HYPOPARATHYROIDISM SECONDARY
     Route: 048
     Dates: start: 20201023
  4. COLCHICINE 0.6MG [Concomitant]
     Active Substance: COLCHICINE
  5. FUROSEMIDE 20MG [Concomitant]
     Active Substance: FUROSEMIDE
  6. ZETIA [Concomitant]
     Active Substance: EZETIMIBE
  7. HYDROCHLOROTHIAZIDE 12.5MG [Concomitant]
     Active Substance: HYDROCHLOROTHIAZIDE
  8. ALLOPURINOL 100MG [Concomitant]
     Active Substance: ALLOPURINOL

REACTIONS (3)
  - Ulcer [None]
  - Abdominal pain upper [None]
  - Bacterial infection [None]

NARRATIVE: CASE EVENT DATE: 20201221
